FAERS Safety Report 7083449-0 (Version None)
Quarter: 2010Q4

REPORT INFORMATION
  Report Type: 
  Country: None (occurrence: None)
  Receive Date: 20101104
  Receipt Date: 20101028
  Transmission Date: 20110411
  Serious: Yes (Hospitalization)
  Sender: FDA-Public Use
  Company Number: B0674095A

PATIENT
  Sex: Female

DRUGS (2)
  1. DEROXAT [Suspect]
     Route: 048
     Dates: start: 20100630, end: 20100907
  2. ALDACTAZIDE [Suspect]
     Route: 048
     Dates: start: 20100824, end: 20100907

REACTIONS (8)
  - AGGRESSION [None]
  - CONFUSIONAL STATE [None]
  - FLIGHT OF IDEAS [None]
  - HYPONATRAEMIA [None]
  - INSOMNIA [None]
  - PSYCHOMOTOR HYPERACTIVITY [None]
  - SEROTONIN SYNDROME [None]
  - TREMOR [None]
